FAERS Safety Report 9877923 (Version 1)
Quarter: 2014Q1

REPORT INFORMATION
  Report Type: Spontaneous
  Country: GB (occurrence: GB)
  Receive Date: 20140206
  Receipt Date: 20140206
  Transmission Date: 20141002
  Serious: Yes (Life-Threatening, Hospitalization, Other)
  Sender: FDA-Public Use
  Company Number: GB-009507513-1402GBR002482

PATIENT
  Age: 31 Year
  Sex: Female

DRUGS (11)
  1. MIRTAZAPINE [Suspect]
     Dosage: 30 MG, QD
     Route: 048
  2. CYCLIZINE [Concomitant]
     Dosage: 50 MG, TID
     Route: 040
  3. FENTANYL [Concomitant]
     Dosage: 50 MICROGRAM, 1/1 HOURS
     Route: 062
  4. FERROUS FUMARATE [Concomitant]
     Dosage: 280 MG, BID
     Route: 048
  5. FLUCONAZOLE [Concomitant]
     Dosage: 50 MG, QD
     Route: 048
  6. LANSOPRAZOLE [Concomitant]
     Dosage: 30 MG, QD
     Route: 048
  7. NORETHINDRONE [Concomitant]
     Dosage: 5 MG, TID
     Route: 048
  8. NYSTATIN [Concomitant]
     Dosage: 1 ML, QID
     Route: 002
  9. ORAMORPH [Concomitant]
     Dosage: 2.5 MG, 1 / 2 HOURS
     Route: 048
  10. PARACETAMOL [Concomitant]
     Dosage: 1 G, QID
  11. PREDNISOLONE [Concomitant]
     Dosage: 15 MG, QD
     Route: 048

REACTIONS (2)
  - Crohn^s disease [Unknown]
  - Pancytopenia [Recovered/Resolved]
